FAERS Safety Report 4880039-2 (Version None)
Quarter: 2006Q1

REPORT INFORMATION
  Report Type: 
  Country: None (occurrence: None)
  Receive Date: 20060111
  Receipt Date: 20051220
  Transmission Date: 20060701
  Serious: Yes (Death)
  Sender: FDA-Public Use
  Company Number: US200512001117

PATIENT
  Age: 86 Year
  Sex: Male

DRUGS (1)
  1. PROZAC [Suspect]
     Dosage: 10 MG,

REACTIONS (2)
  - MYOCARDIAL INFARCTION [None]
  - SUDDEN DEATH [None]
